FAERS Safety Report 10236219 (Version 1)
Quarter: 2014Q2

REPORT INFORMATION
  Report Type: Spontaneous
  Country: DE (occurrence: DE)
  Receive Date: 20140613
  Receipt Date: 20140613
  Transmission Date: 20141212
  Serious: Yes (Other)
  Sender: FDA-Public Use
  Company Number: DE-WATSON-2014-12306

PATIENT
  Age: 31 Year
  Sex: Male

DRUGS (9)
  1. SERTRALINE (UNKNOWN) [Suspect]
     Indication: PRODUCT USED FOR UNKNOWN INDICATION
     Dosage: 150 MG, DAILY
     Route: 048
     Dates: start: 20130814, end: 20130920
  2. SERTRALINE (UNKNOWN) [Suspect]
     Dosage: 100 MG, DAILY
     Route: 048
     Dates: start: 20130808, end: 20130813
  3. SERTRALINE (UNKNOWN) [Suspect]
     Dosage: 50 MG, DAILY
     Route: 048
     Dates: start: 20130805, end: 20130807
  4. FORMOTEROL                         /00958002/ [Concomitant]
     Indication: PRODUCT USED FOR UNKNOWN INDICATION
     Dosage: 1 DF PER DAY
     Dates: start: 201212
  5. PANTOZOL                           /01263204/ [Concomitant]
     Indication: PRODUCT USED FOR UNKNOWN INDICATION
     Dosage: 20 MG, DAILY
     Route: 048
     Dates: start: 20130521
  6. LEPONEX [Concomitant]
     Indication: PRODUCT USED FOR UNKNOWN INDICATION
     Dosage: 200 UNK, UNK
     Dates: start: 20130913
  7. LEPONEX [Concomitant]
     Dosage: 250 UNK, UNK
     Route: 048
     Dates: start: 20130727, end: 20130912
  8. LEPONEX [Concomitant]
     Dosage: 225 UNK, UNK
     Route: 048
     Dates: start: 20130726, end: 20130726
  9. LEPONEX [Concomitant]
     Dosage: 200 MG, DAILY
     Route: 048
     Dates: start: 20130615, end: 20130725

REACTIONS (1)
  - Myalgia [Recovered/Resolved]
